FAERS Safety Report 12828107 (Version 2)
Quarter: 2016Q4

REPORT INFORMATION
  Report Type: Report from Study
  Country: US (occurrence: US)
  Receive Date: 20161007
  Receipt Date: 20161215
  Transmission Date: 20170207
  Serious: Yes (Hospitalization, Other)
  Sender: FDA-Public Use
  Company Number: US-SA-2016SA172926

PATIENT
  Age: 65 Year
  Sex: Male

DRUGS (1)
  1. LEMTRADA [Suspect]
     Active Substance: ALEMTUZUMAB
     Indication: MULTIPLE SCLEROSIS
     Route: 041
     Dates: start: 20160912, end: 20160914

REACTIONS (6)
  - Dyspnoea [Recovered/Resolved]
  - Troponin increased [Unknown]
  - Rash [Unknown]
  - Pulmonary thrombosis [Unknown]
  - Malaise [Unknown]
  - Blood pressure fluctuation [Unknown]

NARRATIVE: CASE EVENT DATE: 201609
